FAERS Safety Report 17515943 (Version 1)
Quarter: 2020Q1

REPORT INFORMATION
  Report Type: Spontaneous
  Country: US (occurrence: US)
  Receive Date: 20200309
  Receipt Date: 20200309
  Transmission Date: 20200409
  Serious: No
  Sender: FDA-Public Use
  Company Number: US-MYLANLABS-2020M1022977

PATIENT
  Sex: Female
  Weight: 81.6 kg

DRUGS (1)
  1. ESTRADIOL TRANSDERMAL SYSTEM [Suspect]
     Active Substance: ESTRADIOL
     Indication: PRODUCT USED FOR UNKNOWN INDICATION
     Dosage: 2 TIMES A WEEK

REACTIONS (5)
  - Product adhesion issue [Unknown]
  - Application site reaction [Unknown]
  - Application site pruritus [Unknown]
  - Drug ineffective [Unknown]
  - Application site rash [Unknown]
